FAERS Safety Report 16933718 (Version 2)
Quarter: 2020Q1

REPORT INFORMATION
  Report Type: Spontaneous
  Country: US (occurrence: US)
  Receive Date: 20191018
  Receipt Date: 20200121
  Transmission Date: 20200409
  Serious: Yes (Hospitalization, Other)
  Sender: FDA-Public Use
  Company Number: US-009507513-1910USA008721

PATIENT
  Age: 71 Year
  Sex: Female
  Weight: 55.78 kg

DRUGS (19)
  1. ZOCOR [Suspect]
     Active Substance: SIMVASTATIN
     Dosage: 40 MILLIGRAM, ONCE A DAY
     Route: 048
     Dates: start: 2016
  2. TIZANIDINE HYDROCHLORIDE. [Suspect]
     Active Substance: TIZANIDINE HYDROCHLORIDE
     Dosage: 4 MILLIGRAM, TID
     Route: 048
     Dates: start: 2016
  3. ACETAMINOPHEN. [Concomitant]
     Active Substance: ACETAMINOPHEN
     Dosage: UNK
  4. CLIMARA [Concomitant]
     Active Substance: ESTRADIOL
     Dosage: UNK
  5. GABAPENTIN. [Concomitant]
     Active Substance: GABAPENTIN
     Dosage: UNK
  6. MAGNESIUM CITRATE. [Concomitant]
     Active Substance: MAGNESIUM CITRATE
     Dosage: UNK
  7. SENNOSIDES. [Concomitant]
     Active Substance: SENNOSIDES
     Dosage: UNK
  8. ZOCOR [Suspect]
     Active Substance: SIMVASTATIN
     Indication: HYPERCHOLESTEROLAEMIA
     Dosage: 40 MILLIGRAM, ONCE A DAY
     Route: 048
     Dates: start: 20160401, end: 20160509
  9. LYSINE [Concomitant]
     Active Substance: LYSINE
     Dosage: UNK
  10. FENTANYL. [Concomitant]
     Active Substance: FENTANYL
     Dosage: PATCH
  11. FLUOXETINE [Concomitant]
     Active Substance: FLUOXETINE HYDROCHLORIDE
     Dosage: UNK
  12. OXYCODONE [Concomitant]
     Active Substance: OXYCODONE
     Dosage: UNK
  13. ASCORBIC ACID. [Concomitant]
     Active Substance: ASCORBIC ACID
     Dosage: UNK
  14. WELLBUTRIN [Concomitant]
     Active Substance: BUPROPION HYDROCHLORIDE
     Indication: DEPRESSION
     Dosage: UNK
  15. CALCIUM CARBONATE. [Concomitant]
     Active Substance: CALCIUM CARBONATE
     Dosage: UNK
  16. CELEBREX [Concomitant]
     Active Substance: CELECOXIB
     Indication: ARTHRITIS
     Dosage: UNK
  17. CYANOCOBALAMIN. [Concomitant]
     Active Substance: CYANOCOBALAMIN
     Dosage: UNK
  18. PRINZIDE [Suspect]
     Active Substance: HYDROCHLOROTHIAZIDE\LISINOPRIL
     Indication: HYPERTENSION
     Dosage: 1 DOSAGE FORM, (12.5/10 MILLIGRAM), QD
     Route: 048
     Dates: start: 20160315, end: 20160509
  19. TIZANIDINE HYDROCHLORIDE. [Suspect]
     Active Substance: TIZANIDINE HYDROCHLORIDE
     Indication: MUSCLE SPASMS
     Dosage: 4 MILLIGRAM, THREE TIMES A DAY (TID)
     Route: 048
     Dates: start: 20160421, end: 20160509

REACTIONS (10)
  - Hypotension [Recovered/Resolved]
  - Head injury [Recovered/Resolved]
  - Supraventricular extrasystoles [Unknown]
  - Hypotension [Recovered/Resolved]
  - Dehydration [Recovered/Resolved]
  - Tooth fracture [Recovered/Resolved]
  - Syncope [Recovered/Resolved]
  - Gastrointestinal wall thickening [Unknown]
  - Computerised tomogram thorax abnormal [Unknown]
  - Hepatic cyst [Unknown]

NARRATIVE: CASE EVENT DATE: 20160415
